FAERS Safety Report 8154258-6 (Version None)
Quarter: 2012Q1

REPORT INFORMATION
  Report Type: 
  Country: None (occurrence: None)
  Receive Date: 20120221
  Receipt Date: 20120216
  Transmission Date: 20120608
  Serious: Yes (Other)
  Sender: FDA-Public Use
  Company Number: US-PFIZER INC-2012043099

PATIENT
  Sex: Female
  Weight: 56.689 kg

DRUGS (2)
  1. ZITHROMAX [Suspect]
     Dosage: 250 MG, DAILY
     Dates: start: 20120208, end: 20120212
  2. ZITHROMAX [Suspect]
     Indication: SINUSITIS
     Dosage: 250 MG, 2X/DAY
     Dates: start: 20120207, end: 20120207

REACTIONS (3)
  - ARRHYTHMIA [None]
  - HEART RATE INCREASED [None]
  - CARDIAC FLUTTER [None]
